FAERS Safety Report 8984922 (Version 1)
Quarter: 2012Q4

REPORT INFORMATION
  Report Type: 
  Country: US (occurrence: US)
  Receive Date: 20121226
  Receipt Date: 20121226
  Transmission Date: 20130627
  Serious: No
  Sender: FDA-Public Use
  Company Number: US-BAYER-2012-127209

PATIENT
  Age: 69 Year
  Sex: Female

DRUGS (2)
  1. AVELOX [Suspect]
     Indication: FLU SYMPTOMS
     Dosage: UNK
     Route: 048
     Dates: start: 2010, end: 2010
  2. UNSPECIFIED BLOOD PRESSURE PILLS [Concomitant]

REACTIONS (1)
  - Myalgia [Recovered/Resolved]
